FAERS Safety Report 9348456 (Version 1)
Quarter: 2013Q2

REPORT INFORMATION
  Report Type: Spontaneous
  Country: US (occurrence: None)
  Receive Date: 20130613
  Receipt Date: 20130613
  Transmission Date: 20140414
  Serious: Yes (Other)
  Sender: FDA-Public Use
  Company Number: None

PATIENT
  Age: 4 Year
  Sex: Male
  Weight: 29.48 kg

DRUGS (1)
  1. ICY HOT [Suspect]
     Indication: ACCIDENTAL EXPOSURE TO PRODUCT

REACTIONS (5)
  - Eye pain [None]
  - Accidental exposure to product by child [None]
  - Crying [None]
  - Head injury [None]
  - Chemical burn of skin [None]
